FAERS Safety Report 6293050-4 (Version None)
Quarter: 2009Q3

REPORT INFORMATION
  Report Type: 
  Country: None (occurrence: None)
  Receive Date: 20090729
  Receipt Date: 20090720
  Transmission Date: 20100115
  Serious: Yes (Other)
  Sender: FDA-Public Use
  Company Number: ADR9832009

PATIENT
  Age: 43 Year
  Sex: Male

DRUGS (1)
  1. AMLODIPINE [Suspect]
     Dosage: 560 MG -ONCE

REACTIONS (5)
  - CARDIAC OUTPUT DECREASED [None]
  - HYPOTENSION [None]
  - OVERDOSE [None]
  - POISONING DELIBERATE [None]
  - URINE OUTPUT DECREASED [None]
